FAERS Safety Report 14598071 (Version 3)
Quarter: 2020Q3

REPORT INFORMATION
  Report Type: Spontaneous
  Country: US (occurrence: US)
  Receive Date: 20180305
  Receipt Date: 20200708
  Transmission Date: 20201102
  Serious: Yes (Hospitalization)
  Sender: FDA-Public Use
  Company Number: US-JNJFOC-20180232057

PATIENT
  Age: 53 Year
  Sex: Female

DRUGS (37)
  1. BENADRYL [Concomitant]
     Active Substance: DIPHENHYDRAMINE HYDROCHLORIDE
     Route: 065
     Dates: start: 2007
  2. NORVAC [Concomitant]
     Active Substance: AMLODIPINE BESYLATE
     Route: 065
  3. GRALISE [Concomitant]
     Active Substance: GABAPENTIN
     Route: 065
     Dates: start: 20160712
  4. ALBUTEROL. [Concomitant]
     Active Substance: ALBUTEROL
     Route: 065
     Dates: start: 2007
  5. ATARAX [Concomitant]
     Active Substance: HYDROXYZINE HYDROCHLORIDE
     Route: 065
  6. TRIAMTERENE AND HYDROCHLOROTHIAZIDE [Concomitant]
     Active Substance: HYDROCHLOROTHIAZIDE\TRIAMTERENE
     Route: 065
  7. DEMEROL [Concomitant]
     Active Substance: MEPERIDINE HYDROCHLORIDE
     Route: 065
  8. EPIPEN [Concomitant]
     Active Substance: EPINEPHRINE
     Route: 065
     Dates: start: 2007
  9. SPIRIVA [Concomitant]
     Active Substance: TIOTROPIUM BROMIDE MONOHYDRATE
     Route: 065
  10. XANAX [Concomitant]
     Active Substance: ALPRAZOLAM
     Route: 065
  11. XARELTO [Suspect]
     Active Substance: RIVAROXABAN
     Indication: PULMONARY EMBOLISM
     Route: 048
     Dates: start: 20160725, end: 20160802
  12. HYDROXYZINE HCL [Concomitant]
     Active Substance: HYDROXYZINE HYDROCHLORIDE
     Route: 065
     Dates: start: 2007
  13. MAXAIR [Concomitant]
     Active Substance: PIRBUTEROL ACETATE
     Route: 065
  14. NORCO [Concomitant]
     Active Substance: ACETAMINOPHEN\HYDROCODONE BITARTRATE
     Route: 065
  15. XARELTO [Suspect]
     Active Substance: RIVAROXABAN
     Indication: DEEP VEIN THROMBOSIS
     Route: 048
     Dates: end: 20160806
  16. ATENOLOL. [Concomitant]
     Active Substance: ATENOLOL
     Route: 065
     Dates: start: 1993
  17. TEMAZEPAM. [Concomitant]
     Active Substance: TEMAZEPAM
     Route: 065
     Dates: start: 1993
  18. VENTOLIN [Concomitant]
     Active Substance: ALBUTEROL SULFATE
     Route: 065
  19. LEVOXYL [Concomitant]
     Active Substance: LEVOTHYROXINE SODIUM
     Route: 065
  20. XARELTO [Suspect]
     Active Substance: RIVAROXABAN
     Indication: THROMBOSIS
  21. VERAPAMIL [Concomitant]
     Active Substance: VERAPAMIL HYDROCHLORIDE
     Route: 065
     Dates: start: 1993
  22. SPIRONOLACTONE. [Concomitant]
     Active Substance: SPIRONOLACTONE
     Route: 065
     Dates: start: 1994
  23. PROTONIX [Concomitant]
     Active Substance: PANTOPRAZOLE SODIUM
     Route: 065
  24. OXYCODONE AND ACETAMINOPHEN [Concomitant]
     Active Substance: ACETAMINOPHEN\OXYCODONE HYDROCHLORIDE
     Route: 065
  25. LEVOTHYROXINE. [Concomitant]
     Active Substance: LEVOTHYROXINE
     Route: 065
     Dates: start: 1993
  26. CARISOPRODOL. [Concomitant]
     Active Substance: CARISOPRODOL
     Route: 065
     Dates: start: 1993
  27. POTASSIUM CHLORIDE. [Concomitant]
     Active Substance: POTASSIUM CHLORIDE
     Route: 065
     Dates: start: 1993
  28. ADVAIR HFA [Concomitant]
     Active Substance: FLUTICASONE PROPIONATE\SALMETEROL XINAFOATE
     Route: 065
  29. MORPHINE SULFATE. [Concomitant]
     Active Substance: MORPHINE SULFATE
     Route: 065
  30. FLEXERIL [Concomitant]
     Active Substance: CYCLOBENZAPRINE HYDROCHLORIDE
     Route: 065
  31. WARFARIN SODIUM. [Concomitant]
     Active Substance: WARFARIN SODIUM
     Indication: THROMBOSIS
     Route: 065
     Dates: start: 201608
  32. SIMVASTATIN. [Concomitant]
     Active Substance: SIMVASTATIN
     Route: 065
     Dates: start: 2007
  33. PANTOPRAZOLE [Concomitant]
     Active Substance: PANTOPRAZOLE
     Route: 065
     Dates: start: 1993
  34. TOPIRAMATE. [Concomitant]
     Active Substance: TOPIRAMATE
     Route: 065
     Dates: start: 20160712
  35. MONTELUKAST SODIUM. [Concomitant]
     Active Substance: MONTELUKAST SODIUM
     Route: 065
     Dates: start: 2007
  36. CECLOR [Concomitant]
     Active Substance: CEFACLOR
     Route: 065
  37. SOMA [Concomitant]
     Active Substance: CARISOPRODOL
     Route: 065

REACTIONS (3)
  - Haemoptysis [Recovered/Resolved]
  - Gastrointestinal haemorrhage [Not Recovered/Not Resolved]
  - Epistaxis [Recovered/Resolved]

NARRATIVE: CASE EVENT DATE: 20160728
